FAERS Safety Report 7928459-3 (Version None)
Quarter: 2011Q4

REPORT INFORMATION
  Report Type: 
  Country: None (occurrence: None)
  Receive Date: 20111118
  Receipt Date: 20111110
  Transmission Date: 20120403
  Serious: Yes (Other)
  Sender: FDA-Public Use
  Company Number: PHHY2011MX099424

PATIENT
  Sex: Female

DRUGS (1)
  1. EXELON [Suspect]
     Indication: DEMENTIA ALZHEIMER'S TYPE
     Dosage: PATCH 5 (4.6 MG DAILY)
     Route: 062
     Dates: start: 20110914

REACTIONS (3)
  - URINARY TRACT INFECTION [None]
  - SEPSIS [None]
  - LOSS OF CONSCIOUSNESS [None]
